FAERS Safety Report 4941880-0 (Version None)
Quarter: 2006Q1

REPORT INFORMATION
  Report Type: 
  Country: None (occurrence: None)
  Receive Date: 20060308
  Receipt Date: 20060225
  Transmission Date: 20060701
  Serious: Yes (Death, Hospitalization, Other)
  Sender: FDA-Public Use
  Company Number: 2006009314

PATIENT
  Age: 45 Year
  Sex: Female

DRUGS (6)
  1. LYRICA [Suspect]
     Indication: FACIAL NEURALGIA
     Dosage: 150 MG (75 MG, 2 IN 1 D), UNKNOWN
     Route: 065
     Dates: start: 20051216
  2. ATENOLOL [Concomitant]
  3. PRILOSEC [Concomitant]
  4. NORTRIPTYLINE (NORTRIPTYLINE) [Concomitant]
  5. LEVOTHYROXINE SODIUM [Concomitant]
  6. REGLAN [Concomitant]

REACTIONS (2)
  - POST PROCEDURAL COMPLICATION [None]
  - PULMONARY EMBOLISM [None]
